FAERS Safety Report 4514702-X (Version None)
Quarter: 2004Q4

REPORT INFORMATION
  Report Type: 
  Country: None (occurrence: None)
  Receive Date: 20041126
  Receipt Date: 20041112
  Transmission Date: 20050328
  Serious: Yes (Hospitalization, Disabling)
  Sender: FDA-Public Use
  Company Number: 2004SE06370

PATIENT
  Age: 53 Year
  Sex: Female

DRUGS (8)
  1. PLENDIL [Suspect]
     Indication: HYPERTENSION
     Dosage: 10 MG DAILY PO
     Route: 048
     Dates: start: 19960101, end: 20040715
  2. SELOKEN [Concomitant]
  3. ASPIRIN [Concomitant]
  4. ATACAND [Concomitant]
  5. LASIX [Concomitant]
  6. IMOVANE [Concomitant]
  7. STOTALOL [Concomitant]
  8. ZOCORD [Concomitant]

REACTIONS (10)
  - ABASIA [None]
  - ASTHENIA [None]
  - DIFFICULTY IN WALKING [None]
  - GASTRIC DISORDER [None]
  - GENERAL PHYSICAL HEALTH DETERIORATION [None]
  - HYPOAESTHESIA [None]
  - NERVE INJURY [None]
  - OEDEMA PERIPHERAL [None]
  - PARAESTHESIA [None]
  - SWELLING [None]
